FAERS Safety Report 5922335-3 (Version None)
Quarter: 2008Q4

REPORT INFORMATION
  Report Type: 
  Country: None (occurrence: None)
  Receive Date: 20081017
  Receipt Date: 20081013
  Transmission Date: 20090506
  Serious: Yes (Other)
  Sender: FDA-Public Use
  Company Number: US-ELI_LILLY_AND_COMPANY-US200810002846

PATIENT
  Age: 65 Year
  Sex: Male

DRUGS (3)
  1. HUMALOG [Suspect]
     Indication: DIABETES MELLITUS
     Dosage: 7 U, UNK
  2. HUMALOG [Suspect]
     Indication: DIABETES MELLITUS
     Dosage: 10 U, EACH MORNING
  3. HUMULIN N [Suspect]
     Indication: DIABETES MELLITUS
     Dosage: 8 U, EACH EVENING

REACTIONS (3)
  - BLADDER CANCER [None]
  - BLINDNESS [None]
  - CATARACT [None]
